FAERS Safety Report 5854037-6 (Version None)
Quarter: 2008Q3

REPORT INFORMATION
  Report Type: 
  Country: None (occurrence: None)
  Receive Date: 20080822
  Receipt Date: 20080817
  Transmission Date: 20090109
  Serious: Yes (Hospitalization)
  Sender: FDA-Public Use
  Company Number: IL-MERCK-0807ISR00008

PATIENT
  Age: 51 Year
  Sex: Male

DRUGS (1)
  1. CANCIDAS [Suspect]
     Indication: CANDIDIASIS
     Route: 065
     Dates: start: 20080501

REACTIONS (1)
  - HEPATOSPLENIC CANDIDIASIS [None]
